FAERS Safety Report 13113891 (Version 1)
Quarter: 2017Q1

REPORT INFORMATION
  Report Type: Spontaneous
  Country: PT (occurrence: PT)
  Receive Date: 20170113
  Receipt Date: 20170113
  Transmission Date: 20170428
  Serious: Yes (Other)
  Sender: FDA-Public Use
  Company Number: PT-TEVA-727921ISR

PATIENT
  Age: 78 Year
  Sex: Female

DRUGS (6)
  1. TYVERB [Concomitant]
     Active Substance: LAPATINIB
     Indication: BREAST CANCER
     Dosage: 1250 MILLIGRAM DAILY;
     Route: 048
     Dates: start: 201607
  2. FLUDEX [Concomitant]
     Active Substance: INDAPAMIDE
     Route: 048
  3. NEBIVOLOL. [Concomitant]
     Active Substance: NEBIVOLOL
     Route: 048
  4. CAPECITABINA ACTAVIS [Suspect]
     Active Substance: CAPECITABINE
     Indication: BREAST CANCER
     Dosage: 2600 MILLIGRAM DAILY;
     Route: 048
     Dates: start: 201610, end: 20161220
  5. COZAAR [Concomitant]
     Active Substance: LOSARTAN POTASSIUM
     Dosage: DOSAGE AND DOSAGE FORM UNKNOWN
     Route: 048
  6. LEXOTAN [Concomitant]
     Active Substance: BROMAZEPAM
     Dosage: DOSAGE  UNKNOWN
     Route: 048

REACTIONS (7)
  - Skin fissures [Not Recovered/Not Resolved]
  - Wound [Not Recovered/Not Resolved]
  - Treatment noncompliance [None]
  - Product substitution issue [Not Recovered/Not Resolved]
  - Abdominal pain [Not Recovered/Not Resolved]
  - Alopecia [Not Recovered/Not Resolved]
  - Skin reaction [Not Recovered/Not Resolved]

NARRATIVE: CASE EVENT DATE: 201611
